FAERS Safety Report 9000062 (Version 1)
Quarter: 2013Q1

REPORT INFORMATION
  Report Type: Spontaneous
  Country: US (occurrence: US)
  Receive Date: 20130102
  Receipt Date: 20130102
  Transmission Date: 20140127
  Serious: Yes (Other)
  Sender: FDA-Public Use
  Company Number: US-PFIZER INC-2012332295

PATIENT
  Age: 47 Year
  Sex: Female
  Weight: 72.56 kg

DRUGS (4)
  1. CELEBREX [Suspect]
     Indication: OSTEOARTHRITIS
     Dosage: 200 MG, DAILY
     Route: 048
  2. OMEPRAZOLE [Concomitant]
     Indication: GASTRITIS
     Dosage: 200 MG, DAILY
  3. ZANTAC [Concomitant]
     Indication: GASTRITIS
     Dosage: 300 MG, DAILY
  4. DEXILANT [Concomitant]
     Indication: NEOPLASM PROPHYLAXIS
     Dosage: 60 MG, DAILY

REACTIONS (2)
  - Road traffic accident [Unknown]
  - Chronic obstructive pulmonary disease [Not Recovered/Not Resolved]
